FAERS Safety Report 6032493-0 (Version None)
Quarter: 2009Q1

REPORT INFORMATION
  Report Type: 
  Country: None (occurrence: None)
  Receive Date: 20090109
  Receipt Date: 20080918
  Transmission Date: 20090719
  Serious: No
  Sender: FDA-Public Use
  Company Number: A0749141A

PATIENT
  Age: 68 Year
  Sex: Female

DRUGS (2)
  1. TYKERB [Suspect]
     Indication: BREAST CANCER
     Dosage: 5TAB PER DAY
     Route: 048
     Dates: start: 20080910
  2. XELODA [Concomitant]

REACTIONS (3)
  - ANOREXIA [None]
  - DIARRHOEA [None]
  - VOMITING [None]
